FAERS Safety Report 7512332-9 (Version None)
Quarter: 2011Q2

REPORT INFORMATION
  Report Type: 
  Country: None (occurrence: None)
  Receive Date: 20110531
  Receipt Date: 20110519
  Transmission Date: 20111010
  Serious: Yes (Death)
  Sender: FDA-Public Use
  Company Number: GB-PFIZER INC-2011087598

PATIENT
  Age: 49 Year
  Sex: Female

DRUGS (8)
  1. DAUNORUBICIN HCL [Suspect]
     Indication: MYELODYSPLASTIC SYNDROME
     Dosage: UNK
     Dates: start: 20110209, end: 20110216
  2. NORETHISTERONE [Concomitant]
     Dosage: 5 MG, 3X/DAY
     Dates: start: 20110301
  3. LENOGRASTIM [Concomitant]
     Dosage: 263 MG, UNK
     Dates: start: 20110301
  4. LANSOPRAZOLE [Concomitant]
     Dosage: 40 MG, UNK
  5. CYTARABINE [Suspect]
     Indication: MYELODYSPLASTIC SYNDROME
     Dosage: UNK
     Dates: start: 20110209, end: 20110216
  6. ADCAL-D3 [Concomitant]
     Dosage: 2 UNITS, 2X/DAY
     Dates: start: 20110301
  7. GEMTUZUMAB OZOGAMICIN [Suspect]
     Indication: MYELODYSPLASTIC SYNDROME
     Dosage: 6 MG, UNK
     Dates: start: 20110209, end: 20110216
  8. MEROPENEM [Concomitant]
     Dosage: 1 G, 3X/DAY
     Dates: start: 20110302

REACTIONS (5)
  - RESPIRATORY FAILURE [None]
  - NEUTROPENIC SEPSIS [None]
  - ENTEROCOCCAL INFECTION [None]
  - RENAL FAILURE ACUTE [None]
  - CAECITIS [None]
